FAERS Safety Report 10191593 (Version 1)
Quarter: 2014Q2

REPORT INFORMATION
  Report Type: Spontaneous
  Country: US (occurrence: US)
  Receive Date: 20140523
  Receipt Date: 20140523
  Transmission Date: 20141212
  Serious: Yes (Disabling)
  Sender: FDA-Public Use
  Company Number: US-SA-2014SA062961

PATIENT
  Age: 46 Year
  Sex: Female

DRUGS (2)
  1. LANTUS SOLOSTAR [Suspect]
     Indication: TYPE 2 DIABETES MELLITUS
     Dosage: AS CAPTURED FROM NARRATIVE DOSE:50 UNIT(S)
     Route: 058
  2. SOLOSTAR [Concomitant]

REACTIONS (1)
  - Disability [Unknown]
